FAERS Safety Report 15822398 (Version 1)
Quarter: 2019Q1

REPORT INFORMATION
  Report Type: Spontaneous
  Country: US (occurrence: US)
  Receive Date: 20190114
  Receipt Date: 20190114
  Transmission Date: 20190417
  Serious: No
  Sender: FDA-Public Use
  Company Number: None

PATIENT
  Age: 35 Year
  Sex: Female
  Weight: 82.35 kg

DRUGS (1)
  1. AIMOVIG [Suspect]
     Active Substance: ERENUMAB-AOOE
     Indication: MIGRAINE
     Route: 058

REACTIONS (17)
  - Dizziness [None]
  - Discomfort [None]
  - Urinary tract disorder [None]
  - Alopecia [None]
  - Neck pain [None]
  - Ear discomfort [None]
  - Increased appetite [None]
  - Constipation [None]
  - Nausea [None]
  - Anxiety [None]
  - Hypoaesthesia [None]
  - Arthralgia [None]
  - Drug interaction [None]
  - Rash [None]
  - Paraesthesia [None]
  - Myalgia [None]
  - Burning sensation [None]
